FAERS Safety Report 15431754 (Version 5)
Quarter: 2019Q2

REPORT INFORMATION
  Report Type: Spontaneous
  Country: US (occurrence: US)
  Receive Date: 20180926
  Receipt Date: 20190404
  Transmission Date: 20190711
  Serious: No
  Sender: FDA-Public Use
  Company Number: US-ASTRAZENECA-2018SF08983

PATIENT
  Age: 27145 Day
  Sex: Female
  Weight: 75.3 kg

DRUGS (1)
  1. BYDUREON BCISE [Suspect]
     Active Substance: EXENATIDE
     Indication: TYPE 2 DIABETES MELLITUS
     Route: 058
     Dates: start: 201806

REACTIONS (4)
  - Injection site haemorrhage [Recovered/Resolved]
  - Device malfunction [Unknown]
  - Circumstance or information capable of leading to medication error [Unknown]
  - Injection site pain [Recovered/Resolved]

NARRATIVE: CASE EVENT DATE: 20180826
